FAERS Safety Report 9825742 (Version 1)
Quarter: 2013Q4

REPORT INFORMATION
  Report Type: Spontaneous
  Country: US (occurrence: None)
  Receive Date: 20131028
  Receipt Date: 20131028
  Transmission Date: 20140711
  Serious: Yes (Other)
  Sender: FDA-Public Use
  Company Number: 2013US002250

PATIENT
  Age: 73 Year
  Sex: Female
  Weight: 80 kg

DRUGS (2)
  1. ICLUSING [Suspect]
     Indication: CHROMOSOME ANALYSIS ABNORMAL
     Route: 048
     Dates: start: 20130320, end: 20130731
  2. ICLUSING [Suspect]
     Indication: ACUTE LYMPHOCYTIC LEUKAEMIA
     Route: 048
     Dates: start: 20130320, end: 20130731

REACTIONS (2)
  - White blood cell count increased [None]
  - Disease progression [None]
